FAERS Safety Report 13826388 (Version 1)
Quarter: 2017Q3

REPORT INFORMATION
  Report Type: Spontaneous
  Country: US (occurrence: US)
  Receive Date: 20170802
  Receipt Date: 20170802
  Transmission Date: 20171127
  Serious: No
  Sender: FDA-Public Use
  Company Number: US-BIOGEN-2017BI00438719

PATIENT
  Sex: Female

DRUGS (1)
  1. AVONEX [Suspect]
     Active Substance: INTERFERON BETA-1A
     Indication: MULTIPLE SCLEROSIS
     Route: 065
     Dates: start: 20110401, end: 20131231

REACTIONS (4)
  - Pain in extremity [Unknown]
  - Influenza like illness [Recovered/Resolved]
  - Drug administered at inappropriate site [Unknown]
  - Injection site reaction [Unknown]
